FAERS Safety Report 13574244 (Version 2)
Quarter: 2017Q2

REPORT INFORMATION
  Report Type: Report from Study
  Country: US (occurrence: BR)
  Receive Date: 20170523
  Receipt Date: 20170626
  Transmission Date: 20170830
  Serious: Yes (Other)
  Sender: FDA-Public Use
  Company Number: US-SUNOVION-2017SUN002147

PATIENT
  Sex: Female
  Weight: 58 kg

DRUGS (3)
  1. INDACATEROL AND GLYCOPYRROLATE [Suspect]
     Active Substance: GLYCOPYRROLATE\INDACATEROL MALEATE
     Indication: BRONCHITIS
     Dosage: UNK, QD
     Route: 065
  2. BEROTEC [Concomitant]
     Active Substance: FENOTEROL HYDROBROMIDE
  3. ATROVENT [Concomitant]
     Active Substance: IPRATROPIUM BROMIDE

REACTIONS (7)
  - Breast mass [Unknown]
  - Body height decreased [Unknown]
  - Dyspnoea [Not Recovered/Not Resolved]
  - Fatigue [Recovering/Resolving]
  - Decreased activity [Unknown]
  - Insomnia [Not Recovered/Not Resolved]
  - Pulmonary mass [Recovering/Resolving]
